FAERS Safety Report 18439925 (Version 1)
Quarter: 2020Q4

REPORT INFORMATION
  Report Type: Report from Study
  Country: IN (occurrence: IN)
  Receive Date: 20201029
  Receipt Date: 20201029
  Transmission Date: 20210114
  Serious: Yes (Other)
  Sender: FDA-Public Use
  Company Number: NVSC2020IN226172

PATIENT
  Age: 78 Year
  Sex: Female

DRUGS (1)
  1. VYMADA [Suspect]
     Active Substance: SACUBITRIL\VALSARTAN
     Indication: CARDIAC FAILURE CHRONIC
     Dosage: 50 MG, BID
     Route: 065
     Dates: start: 20190806

REACTIONS (8)
  - Pulmonary oedema [Unknown]
  - Dyspnoea [Recovered/Resolved]
  - Hypoacusis [Unknown]
  - Asthenia [Recovered/Resolved]
  - Peripheral swelling [Unknown]
  - Fatigue [Recovered/Resolved]
  - Fluid retention [Unknown]
  - Dyspnoea [Unknown]

NARRATIVE: CASE EVENT DATE: 20200723
